FAERS Safety Report 8851061 (Version 1)
Quarter: 2012Q4

REPORT INFORMATION
  Report Type: 
  Country: US (occurrence: US)
  Receive Date: 20121019
  Receipt Date: 20121019
  Transmission Date: 20130627
  Serious: No
  Sender: FDA-Public Use
  Company Number: US-009507513-1208USA002985

PATIENT
  Age: 46 Year
  Sex: Female
  Weight: 71.66 kg

DRUGS (2)
  1. PEGINTRON [Suspect]
     Dosage: 120 Microgram per kilogram, qw
     Route: 058
     Dates: start: 20120726, end: 20120920
  2. VICTRELIS [Suspect]
     Dosage: UNK

REACTIONS (2)
  - Herpes zoster [Not Recovered/Not Resolved]
  - Accidental exposure to product [Unknown]
